FAERS Safety Report 9700273 (Version 1)
Quarter: 2013Q4

REPORT INFORMATION
  Report Type: Spontaneous
  Country: FR (occurrence: FR)
  Receive Date: 20131121
  Receipt Date: 20131121
  Transmission Date: 20140711
  Serious: Yes (Hospitalization)
  Sender: FDA-Public Use
  Company Number: FR-JNJFOC-20131108567

PATIENT
  Age: 55 Year
  Sex: Female

DRUGS (2)
  1. SIMPONI [Suspect]
     Indication: RHEUMATOID ARTHRITIS
     Route: 058
     Dates: start: 20131002
  2. EXFORGE [Concomitant]
     Indication: HYPERTENSION
     Dosage: 10 MG/160 MG
     Route: 048

REACTIONS (1)
  - Erysipelas [Recovering/Resolving]
